FAERS Safety Report 5361638-0 (Version None)
Quarter: 2007Q2

REPORT INFORMATION
  Report Type: 
  Country: None (occurrence: None)
  Receive Date: 20070615
  Receipt Date: 20070615
  Transmission Date: 20071010
  Serious: No
  Sender: FDA-Public Use
  Company Number: None

PATIENT
  Age: 50 Year
  Sex: Male

DRUGS (2)
  1. ARIPIPRAZOLE [Suspect]
     Indication: SCHIZOPHRENIA, PARANOID TYPE
     Dosage: 20MG EVERY DAY PO
     Route: 048
     Dates: start: 20070526, end: 20070529
  2. DIPHENHYDRAMINE HCL [Suspect]
     Indication: INSOMNIA
     Dosage: 50MG HS PO
     Route: 048

REACTIONS (4)
  - AKATHISIA [None]
  - BRUXISM [None]
  - JOINT STIFFNESS [None]
  - SOMNOLENCE [None]
